FAERS Safety Report 5156698-6 (Version None)
Quarter: 2006Q4

REPORT INFORMATION
  Report Type: 
  Country: None (occurrence: None)
  Receive Date: 20061115
  Receipt Date: 20061030
  Transmission Date: 20070319
  Serious: Yes (Hospitalization, Other)
  Sender: FDA-Public Use
  Company Number: 229376

PATIENT
  Age: 70 Year
  Sex: Male

DRUGS (10)
  1. RAPTIVA [Suspect]
     Indication: PSORIASIS
     Dosage: 0.8 ML, 1/WEEK, SUBCUTANEOUS
     Route: 058
     Dates: start: 20060630
  2. MOXONIDIN (MOXONIDINE) [Concomitant]
  3. XIPAMID (XIPAMIDE) [Concomitant]
  4. DIGITOXIN TAB [Concomitant]
  5. ALLOPURINOL [Concomitant]
  6. SIMVASTATIN [Concomitant]
  7. ASPIRIN [Concomitant]
  8. RAMIPRIL [Concomitant]
  9. METOPROLOL TARTRATE [Concomitant]
  10. NITRENDIPIN (NITRIDIPINE) [Concomitant]

REACTIONS (7)
  - CHOLESTASIS [None]
  - GASTRITIS [None]
  - HEPATOSPLENOMEGALY [None]
  - HEPATOTOXICITY [None]
  - LYMPHADENOPATHY [None]
  - PRURITUS [None]
  - WHITE BLOOD CELL COUNT INCREASED [None]
